FAERS Safety Report 12225984 (Version 1)
Quarter: 2016Q1

REPORT INFORMATION
  Report Type: Spontaneous
  Country: US (occurrence: US)
  Receive Date: 20160331
  Receipt Date: 20160331
  Transmission Date: 20160526
  Serious: Yes (Hospitalization, Other)
  Sender: FDA-Public Use
  Company Number: US-MDT-ADR-2016-00599

PATIENT
  Age: 56 Year
  Sex: Male

DRUGS (2)
  1. DILAUDID [Suspect]
     Active Substance: HYDROMORPHONE HYDROCHLORIDE
     Dosage: 1.02 MG/DAY
  2. BACLOFEN, UNKNOWN [Suspect]
     Active Substance: BACLOFEN
     Dosage: 425 MCG/DAY
     Route: 037

REACTIONS (2)
  - Fall [Unknown]
  - Pain [Unknown]
